FAERS Safety Report 23986287 (Version 1)
Quarter: 2024Q2

REPORT INFORMATION
  Report Type: Spontaneous
  Country: US (occurrence: US)
  Receive Date: 20240618
  Receipt Date: 20240618
  Transmission Date: 20240716
  Serious: Yes (Hospitalization, Other)
  Sender: FDA-Public Use
  Company Number: US-VERTEX PHARMACEUTICALS-2024-010045

PATIENT
  Age: 19 Year
  Sex: Male

DRUGS (8)
  1. TRIKAFTA [Suspect]
     Active Substance: ELEXACAFTOR\IVACAFTOR\TEZACAFTOR
     Indication: Cystic fibrosis
     Dosage: UNK FREQ
     Route: 048
  2. AZTREONAM LYSINE [Suspect]
     Active Substance: AZTREONAM LYSINE
     Indication: Cystic fibrosis
     Dosage: 75MG TID
     Dates: start: 20170606
  3. PULMOZYME [Concomitant]
     Active Substance: DORNASE ALFA
  4. ALBUTEIN [Concomitant]
     Active Substance: ALBUMIN HUMAN
  5. CREON [Concomitant]
     Active Substance: PANCRELIPASE AMYLASE\PANCRELIPASE LIPASE\PANCRELIPASE PROTEASE
  6. FLONASE [Concomitant]
     Active Substance: FLUTICASONE PROPIONATE
  7. MIRTAZAPINE [Concomitant]
     Active Substance: MIRTAZAPINE
  8. PROAIR HFA [Concomitant]
     Active Substance: ALBUTEROL SULFATE

REACTIONS (3)
  - Infective pulmonary exacerbation of cystic fibrosis [Unknown]
  - Wheezing [Unknown]
  - Hepatic enzyme increased [Unknown]
